FAERS Safety Report 19821079 (Version 1)
Quarter: 2021Q3

REPORT INFORMATION
  Report Type: Spontaneous
  Country: US (occurrence: US)
  Receive Date: 20210909
  Receipt Date: 20210909
  Transmission Date: 20211014
  Serious: Yes (Hospitalization)
  Sender: FDA-Public Use
  Company Number: None

PATIENT
  Age: 56 Year
  Sex: Female
  Weight: 113.2 kg

DRUGS (34)
  1. DAPSONE. [Concomitant]
     Active Substance: DAPSONE
  2. MAGOX [Concomitant]
  3. PROGRAF [Concomitant]
     Active Substance: TACROLIMUS
  4. KLONOPIN [Concomitant]
     Active Substance: CLONAZEPAM
  5. PRAVASTATIN. [Concomitant]
     Active Substance: PRAVASTATIN
  6. ATORVASTATIN [Concomitant]
     Active Substance: ATORVASTATIN
  7. PROBIOTIC [Concomitant]
     Active Substance: PROBIOTICS NOS
  8. CARDENE [Concomitant]
     Active Substance: NICARDIPINE HYDROCHLORIDE
  9. COLACE [Concomitant]
     Active Substance: DOCUSATE SODIUM
  10. POLYETHYLENE GLYCOL [Concomitant]
     Active Substance: POLYETHYLENE GLYCOLS
  11. LYRICA [Concomitant]
     Active Substance: PREGABALIN
  12. VALGANCICLOVIR. [Concomitant]
     Active Substance: VALGANCICLOVIR
  13. XANAX [Concomitant]
     Active Substance: ALPRAZOLAM
  14. FAMOTIDINE. [Concomitant]
     Active Substance: FAMOTIDINE
  15. MAVYRET [Suspect]
     Active Substance: GLECAPREVIR\PIBRENTASVIR
     Indication: HEPATITIS C
     Route: 048
     Dates: start: 20200415, end: 20200710
  16. METOCLOPRAMIDE. [Concomitant]
     Active Substance: METOCLOPRAMIDE
  17. PRILOSAC [Concomitant]
  18. NORCO [Concomitant]
     Active Substance: ACETAMINOPHEN\HYDROCODONE BITARTRATE
  19. BASAGLAR [Concomitant]
     Active Substance: INSULIN GLARGINE
  20. SEVELAMER [Concomitant]
     Active Substance: SEVELAMER
  21. TRAMADOL. [Concomitant]
     Active Substance: TRAMADOL
  22. VITAMIN B [Concomitant]
     Active Substance: VITAMIN B
  23. CINACALCET. [Concomitant]
     Active Substance: CINACALCET
  24. FUROSEMIDE. [Concomitant]
     Active Substance: FUROSEMIDE
  25. ACETAMINOPHEN. [Concomitant]
     Active Substance: ACETAMINOPHEN
  26. NORVASC [Concomitant]
     Active Substance: AMLODIPINE BESYLATE
  27. ASPIRIN. [Concomitant]
     Active Substance: ASPIRIN
  28. NITROGLYCERIN. [Concomitant]
     Active Substance: NITROGLYCERIN
  29. ZOFRAN [Concomitant]
     Active Substance: ONDANSETRON HYDROCHLORIDE
  30. PYRIDOXINE [Concomitant]
     Active Substance: PYRIDOXINE
  31. PLAQUENIL [Concomitant]
     Active Substance: HYDROXYCHLOROQUINE SULFATE
  32. CARVEDILOL. [Concomitant]
     Active Substance: CARVEDILOL
  33. VITAMIN D3 [Concomitant]
     Active Substance: CHOLECALCIFEROL
  34. LANTUS [Concomitant]
     Active Substance: INSULIN GLARGINE

REACTIONS (3)
  - Kidney transplant rejection [None]
  - Anaemia [None]
  - Fluid overload [None]

NARRATIVE: CASE EVENT DATE: 20210908
